FAERS Safety Report 14688945 (Version 2)
Quarter: 2018Q3

REPORT INFORMATION
  Report Type: Spontaneous
  Country: GB (occurrence: GB)
  Receive Date: 20180328
  Receipt Date: 20180706
  Transmission Date: 20181010
  Serious: No
  Sender: FDA-Public Use
  Company Number: GB-AUROBINDO-AUR-APL-2018-016595

PATIENT
  Age: 53 Year
  Sex: Male

DRUGS (3)
  1. ETANERCEPT [Suspect]
     Active Substance: ETANERCEPT
     Indication: RHEUMATOID ARTHRITIS
  2. CETIRIZINE [Suspect]
     Active Substance: CETIRIZINE HYDROCHLORIDE
     Indication: PRODUCT USED FOR UNKNOWN INDICATION
     Dosage: 10 MG, UNK
     Route: 065
  3. ETANERCEPT [Suspect]
     Active Substance: ETANERCEPT
     Indication: GROWTH HORMONE DEFICIENCY
     Dosage: 50 MG, WEEKLY (QW)
     Route: 065
     Dates: start: 20180119

REACTIONS (6)
  - Dyspnoea [Recovered/Resolved]
  - Bone pain [Recovered/Resolved]
  - Injection site pain [Not Recovered/Not Resolved]
  - Swelling face [Recovered/Resolved]
  - Injection site bruising [Unknown]
  - Injection site erythema [Unknown]

NARRATIVE: CASE EVENT DATE: 20180119
